FAERS Safety Report 11096540 (Version 1)
Quarter: 2015Q2

REPORT INFORMATION
  Report Type: Spontaneous
  Country: US (occurrence: US)
  Receive Date: 20150507
  Receipt Date: 20150507
  Transmission Date: 20150821
  Serious: Yes (Other)
  Sender: FDA-Public Use
  Company Number: US-ASTELLAS-2015US014290

PATIENT
  Age: 37 Year
  Sex: Female

DRUGS (2)
  1. PROGRAF [Suspect]
     Active Substance: TACROLIMUS\TACROLIMUS ANHYDROUS
     Indication: RENAL TRANSPLANT
     Dosage: UNK UNK, UNKNOWN FREQ.
     Route: 065
     Dates: start: 19990824, end: 2007
  2. PROGRAF [Suspect]
     Active Substance: TACROLIMUS\TACROLIMUS ANHYDROUS
     Dosage: UNK, UNKNOWN FREQ.
     Route: 065
     Dates: start: 20130917

REACTIONS (6)
  - Immunosuppressant drug level increased [Unknown]
  - Renal disorder [Unknown]
  - Sleep disorder [Unknown]
  - Dialysis [Unknown]
  - Renal transplant [Unknown]
  - Blood pressure increased [Unknown]

NARRATIVE: CASE EVENT DATE: 19990824
